FAERS Safety Report 15157095 (Version 6)
Quarter: 2018Q3

REPORT INFORMATION
  Report Type: Spontaneous
  Country: AT (occurrence: AT)
  Receive Date: 20180718
  Receipt Date: 20180917
  Transmission Date: 20181010
  Serious: Yes (Death, Hospitalization)
  Sender: FDA-Public Use
  Company Number: AT-TEVA-2018-AT-926235

PATIENT
  Age: 80 Year
  Sex: Female

DRUGS (41)
  1. TRAMADOL. [Suspect]
     Active Substance: TRAMADOL
     Indication: PAIN
     Dosage: 200 MILLIGRAM DAILY; ONCE AT NIGHT
     Route: 065
  2. SERTRALINE [Suspect]
     Active Substance: SERTRALINE HYDROCHLORIDE
     Indication: DEPRESSION
     Dosage: 50 MILLIGRAM DAILY; ONCE IN THE MORNING
     Route: 065
  3. LEVOTHYROXINE. [Concomitant]
     Active Substance: LEVOTHYROXINE
     Indication: HYPOTHYROIDISM
     Dosage: 75 MICROGRAM DAILY; ONCE IN THE MORNING
     Route: 065
  4. PIPERACILLIN/TAZOBACTAM [Concomitant]
     Active Substance: PIPERACILLIN SODIUM\TAZOBACTAM SODIUM
     Route: 065
  5. HYDROMORPHONE [Suspect]
     Active Substance: HYDROMORPHONE
     Indication: PAIN
     Dosage: 4 MILLIGRAM DAILY; ONCE IN THE MORNING
     Route: 065
  6. TIOTROPIUM [Concomitant]
     Active Substance: TIOTROPIUM
     Indication: CHRONIC OBSTRUCTIVE PULMONARY DISEASE
     Dosage: 18 MICROGRAM DAILY; PUFF ONCE IN THE MORNING
     Route: 065
  7. FLUTICASONE. [Concomitant]
     Active Substance: FLUTICASONE
     Indication: CHRONIC OBSTRUCTIVE PULMONARY DISEASE
     Dosage: TWO PUFFS IN THE MORNING AND TWO PUFFS AT NIGHT
     Route: 065
  8. HESPERIDIN [Concomitant]
     Active Substance: HESPERIDIN
     Indication: PERIPHERAL VENOUS DISEASE
     Dosage: 50 MILLIGRAM DAILY; ONCE IN THE MORNING
     Route: 065
  9. GABAPENTIN. [Suspect]
     Active Substance: GABAPENTIN
     Indication: PAIN
     Dosage: 0.5 PER 1 DAY.
     Route: 065
  10. DULOXETINE. [Suspect]
     Active Substance: DULOXETINE
     Indication: PAIN
     Dosage: 60 MILLIGRAM DAILY; ONCE IN THE MORNING
     Route: 065
  11. BISOPROLOL [Suspect]
     Active Substance: BISOPROLOL
     Indication: CORONARY ARTERY DISEASE
     Dosage: IN TWO DIVIDED DOSES, ONE AT MORNING AND ONE AT NIGHT
     Route: 065
  12. ACETAZOLAMIDE. [Suspect]
     Active Substance: ACETAZOLAMIDE
     Indication: HYPERCAPNIA
  13. DICLOFENAC [Concomitant]
     Active Substance: DICLOFENAC
     Indication: PAIN
     Dosage: AS NEEDED IN CASE OF PAIN; MAXIMUM 2X1
     Route: 065
  14. LEVOTHYROXINE. [Concomitant]
     Active Substance: LEVOTHYROXINE
     Indication: HYPOTHYROIDISM
     Dosage: HALF DOSE ONCE IN THE MORNING
     Route: 065
  15. VITAMIN D [Concomitant]
     Active Substance: CHOLECALCIFEROL
     Indication: VITAMIN D DEFICIENCY
     Dosage: 16000 I.E.; WEEKLY
     Route: 065
  16. OMEPRAZOLE. [Concomitant]
     Active Substance: OMEPRAZOLE
     Indication: GASTRITIS
     Dosage: 0.5 PER 1 DAY.
     Route: 065
  17. FUROSEMIDE. [Concomitant]
     Active Substance: FUROSEMIDE
     Indication: DIURETIC THERAPY
     Route: 065
  18. DULOXETINE. [Suspect]
     Active Substance: DULOXETINE
     Indication: DEPRESSION
  19. LEVODOPA [Suspect]
     Active Substance: LEVODOPA
     Indication: RESTLESS LEGS SYNDROME
     Dosage: 100 MILLIGRAM DAILY; ONCE AT NIGHT
     Route: 065
  20. ACETYLSALICYLIC ACID [Suspect]
     Active Substance: ASPIRIN
     Indication: CORONARY ARTERY DISEASE
     Dosage: 100 MILLIGRAM DAILY; ONCE IN THE MORNING
     Route: 065
  21. FENOTEROL [Concomitant]
     Active Substance: FENOTEROL
     Indication: CHRONIC OBSTRUCTIVE PULMONARY DISEASE
     Dosage: PUFFS AS NEEDED IN CASE OF DYSPNOEA; MAXIMUM 4X2
     Route: 065
  22. ATORVASTATIN [Concomitant]
     Active Substance: ATORVASTATIN
     Indication: HYPERCHOLESTEROLAEMIA
     Dosage: 40 MILLIGRAM DAILY; ONCE AT NIGHT
     Route: 065
  23. PRAMIPEXOLE. [Suspect]
     Active Substance: PRAMIPEXOLE
     Indication: RESTLESS LEGS SYNDROME
     Dosage: 2.1 MILLIGRAM DAILY; ONCE IN THE MORNING
     Route: 065
  24. IPRATROPIUM [Concomitant]
     Active Substance: IPRATROPIUM
     Indication: CHRONIC OBSTRUCTIVE PULMONARY DISEASE
     Dosage: PUFFS AS NEEDED IN CASE OF DYSPNOEA; MAXIMUM 4X2
     Route: 065
  25. DIOSMIN [Concomitant]
     Active Substance: DIOSMIN
     Indication: PERIPHERAL VENOUS DISEASE
     Dosage: 450 MILLIGRAM DAILY; ONCE IN THE MORNING
     Route: 065
  26. IBANDRONIC ACID. [Concomitant]
     Active Substance: IBANDRONIC ACID
     Indication: OSTEOPOROSIS
     Dosage: EVERY 3 MONTHS
     Route: 065
  27. DIPHENHYDRAMINE. [Concomitant]
     Active Substance: DIPHENHYDRAMINE
     Indication: ANTIALLERGIC THERAPY
     Route: 065
  28. BENSERAZIDE [Suspect]
     Active Substance: BENSERAZIDE
     Indication: RESTLESS LEGS SYNDROME
     Dosage: 25 MILLIGRAM DAILY; ONCE AT NIGHT
     Route: 065
  29. PREDNISONE. [Concomitant]
     Active Substance: PREDNISONE
     Indication: CHRONIC OBSTRUCTIVE PULMONARY DISEASE
     Dosage: 25 MILLIGRAM DAILY; ONCE IN THE MORNING
     Route: 065
  30. CLOPIDOGREL [Suspect]
     Active Substance: CLOPIDOGREL BISULFATE
     Indication: CORONARY ARTERY DISEASE
     Dosage: 75 MILLIGRAM DAILY; ONCE IN THE MORNING
     Route: 065
  31. ACETAZOLAMIDE. [Suspect]
     Active Substance: ACETAZOLAMIDE
     Indication: ALKALOSIS
     Dosage: 50 MILLIGRAM DAILY; ONCE IN THE MORNING
     Route: 065
  32. PREDNISONE. [Concomitant]
     Active Substance: PREDNISONE
     Indication: CHRONIC OBSTRUCTIVE PULMONARY DISEASE
     Dosage: 5 MILLIGRAM DAILY; ONCE IN THE MORNING
     Route: 065
  33. ACETYLCYSTEINE. [Concomitant]
     Active Substance: ACETYLCYSTEINE
     Indication: CHRONIC OBSTRUCTIVE PULMONARY DISEASE
     Dosage: 600 MILLIGRAM DAILY; ONCE IN THE MORNING; FOR 7 DAYS
     Route: 065
  34. THEOPHYLLINE [Concomitant]
     Active Substance: THEOPHYLLINE ANHYDROUS
     Indication: CHRONIC OBSTRUCTIVE PULMONARY DISEASE
     Dosage: 0.5 PER 1 DAY.
     Route: 065
  35. MORPHINE HYDROCHLORIDE [Concomitant]
     Active Substance: MORPHINE HYDROCHLORIDE
     Route: 065
  36. SERTRALINE [Suspect]
     Active Substance: SERTRALINE HYDROCHLORIDE
     Indication: PANIC ATTACK
  37. RISPERIDONE. [Suspect]
     Active Substance: RISPERIDONE
     Dosage: HALF DOSE AT NIGHT
     Route: 065
  38. ALPRAZOLAM. [Suspect]
     Active Substance: ALPRAZOLAM
     Indication: FEAR
     Dosage: IN TWO DIVIDED DOSES, ONE AT MORNING AND ONE AT NIGHT
     Route: 065
  39. ALPRAZOLAM. [Suspect]
     Active Substance: ALPRAZOLAM
     Indication: DYSPNOEA
  40. SALMETEROL [Concomitant]
     Active Substance: SALMETEROL
     Indication: CHRONIC OBSTRUCTIVE PULMONARY DISEASE
     Dosage: TWO PUFFS IN THE MORNING AND TWO PUFFS AT NIGHT
     Route: 065
  41. ALGELDRATE [Concomitant]
     Active Substance: ALGELDRATE
     Indication: GASTROOESOPHAGEAL REFLUX DISEASE
     Dosage: AS NEEDED, MAXIMUM 2X1
     Route: 065

REACTIONS (3)
  - Off label use [Unknown]
  - Delirium [Unknown]
  - Death [Fatal]
